FAERS Safety Report 9222154 (Version 3)
Quarter: 2013Q3

REPORT INFORMATION
  Report Type: Report from Study
  Country: AU (occurrence: AU)
  Receive Date: 20130410
  Receipt Date: 20130820
  Transmission Date: 20140515
  Serious: Yes (Hospitalization, Other)
  Sender: FDA-Public Use
  Company Number: AU-ASTELLAS-2013US003788

PATIENT
  Age: 49 Year
  Sex: Male
  Weight: 71 kg

DRUGS (4)
  1. ERLOTINIB TABLET [Suspect]
     Indication: NON-SMALL CELL LUNG CANCER
     Dosage: 150 MG, UID/QD
     Route: 048
     Dates: start: 20130314, end: 20130328
  2. ERLOTINIB TABLET [Suspect]
     Dosage: 100 MG, UID/QD
     Route: 048
     Dates: start: 201304, end: 20130704
  3. OXYCONTIN [Concomitant]
     Indication: PAIN
     Dosage: 80 MG, UID/QD
     Route: 065
     Dates: start: 201302
  4. ENDONE [Concomitant]
     Indication: PAIN
     Dosage: 5 MG, PRN
     Route: 065
     Dates: start: 201302

REACTIONS (12)
  - Toxicity to various agents [Unknown]
  - Pain [Unknown]
  - Pulmonary embolism [Unknown]
  - Rash maculo-papular [Not Recovered/Not Resolved]
  - Skin exfoliation [Recovered/Resolved]
  - Pneumonia [Recovered/Resolved]
  - Interstitial lung disease [Unknown]
  - Rash [Unknown]
  - Skin exfoliation [Unknown]
  - Diarrhoea [Unknown]
  - Cough [Recovering/Resolving]
  - Dyspnoea [Recovering/Resolving]
